FAERS Safety Report 10584163 (Version 1)
Quarter: 2014Q4

REPORT INFORMATION
  Report Type: Report from Study
  Country: CN (occurrence: CN)
  Receive Date: 20141114
  Receipt Date: 20141114
  Transmission Date: 20150529
  Serious: Yes (Death, Hospitalization)
  Sender: FDA-Public Use
  Company Number: CN-BAXTER-2014BAX066394

PATIENT
  Age: 78 Year
  Sex: Female
  Weight: 40 kg

DRUGS (10)
  1. HEMOPOIETIN [Concomitant]
     Indication: ANAEMIA
     Dosage: 3000 UNITS
     Route: 058
     Dates: start: 20110228
  2. FERROUS SUCCINATE [Concomitant]
     Active Substance: FERROUS SUCCINATE
     Indication: BLOOD IRON DECREASED
     Dosage: 0.2
     Route: 048
     Dates: start: 20110303
  3. CARVEDILOL. [Concomitant]
     Active Substance: CARVEDILOL
     Indication: HYPERTENSION
     Route: 048
     Dates: start: 20110322
  4. ACTIVE VITAMIN D [Concomitant]
     Indication: PARATHYROID DISORDER
     Route: 048
     Dates: start: 20110228
  5. DIANEAL [Suspect]
     Active Substance: CALCIUM CHLORIDE\DEXTROSE\MAGNESIUM CHLORIDE\SODIUM CHLORIDE\SODIUM LACTATE
     Indication: CHRONIC KIDNEY DISEASE
     Dosage: EVERY 4 HOURS X 3
     Route: 033
     Dates: start: 20110304
  6. DIANEAL [Suspect]
     Active Substance: CALCIUM CHLORIDE\DEXTROSE\MAGNESIUM CHLORIDE\SODIUM CHLORIDE\SODIUM LACTATE
     Indication: CHRONIC KIDNEY DISEASE
  7. CALCIUM CARBONATE. [Concomitant]
     Active Substance: CALCIUM CARBONATE
     Indication: BLOOD PHOSPHORUS INCREASED
     Dosage: 0.6
     Route: 048
     Dates: start: 20110228
  8. FOSINOPRIL [Concomitant]
     Active Substance: FOSINOPRIL
     Indication: HYPERTENSION
     Route: 048
     Dates: start: 20110311
  9. IRBESARTAN. [Concomitant]
     Active Substance: IRBESARTAN
     Indication: HYPERTENSION
     Route: 048
     Dates: start: 20110315
  10. FELODIPINE. [Concomitant]
     Active Substance: FELODIPINE
     Indication: HYPERTENSION
     Route: 048
     Dates: start: 20110307

REACTIONS (2)
  - Sudden death [Fatal]
  - Peritonitis [Recovering/Resolving]

NARRATIVE: CASE EVENT DATE: 20110319
